FAERS Safety Report 4422836-3 (Version None)
Quarter: 2004Q3

REPORT INFORMATION
  Report Type: 
  Country: None (occurrence: None)
  Receive Date: 20040809
  Receipt Date: 20040809
  Transmission Date: 20050211
  Serious: Yes (Life-Threatening, Hospitalization)
  Sender: FDA-Public Use
  Company Number: None

PATIENT
  Age: 55 Year
  Sex: Male
  Weight: 124.2 kg

DRUGS (5)
  1. LISINOPRIL [Suspect]
     Dosage: 40 MG , 40 MG QD ORAL
     Route: 048
     Dates: start: 20040217, end: 20040309
  2. FUROSEMIDE [Suspect]
     Indication: DIURETIC EFFECT
     Dosage: 40 MG, 20 MG BID ORAL
     Route: 048
     Dates: start: 20040104, end: 20040309
  3. GABAPENTIN [Concomitant]
  4. FLUNISOLIDE NASAL INH SPRAY [Concomitant]
  5. SIMVASTATIN [Concomitant]

REACTIONS (2)
  - BLOOD POTASSIUM INCREASED [None]
  - RENAL IMPAIRMENT [None]
